FAERS Safety Report 12639881 (Version 50)
Quarter: 2019Q3

REPORT INFORMATION
  Report Type: Spontaneous
  Country: US (occurrence: US)
  Receive Date: 20160810
  Receipt Date: 20190906
  Transmission Date: 20191004
  Serious: Yes (Congenital Anomaly, Other)
  Sender: FDA-Public Use
  Company Number: PHEH2016US019862

PATIENT
  Sex: Female

DRUGS (3)
  1. ONDANSETRON HYDROCHLORIDE SANDOZ [Suspect]
     Active Substance: ONDANSETRON HYDROCHLORIDE
     Indication: FOETAL EXPOSURE DURING PREGNANCY
     Dosage: MOTHER DOSE: 4 MG, QD
     Route: 064
  2. ZOFRAN [Suspect]
     Active Substance: ONDANSETRON HYDROCHLORIDE
     Indication: FOETAL EXPOSURE DURING PREGNANCY
     Route: 064
  3. ZOFRAN [Suspect]
     Active Substance: ONDANSETRON HYDROCHLORIDE
     Indication: FOETAL EXPOSURE DURING PREGNANCY
     Route: 064

REACTIONS (68)
  - Premature baby [Unknown]
  - Pneumonia [Unknown]
  - Conjunctivitis [Unknown]
  - Constipation [Unknown]
  - Fall [Unknown]
  - Oropharyngeal pain [Unknown]
  - Diarrhoea [Unknown]
  - Skin abrasion [Unknown]
  - Injury [Unknown]
  - Eustachian tube dysfunction [Unknown]
  - Candida nappy rash [Unknown]
  - Mouth breathing [Unknown]
  - Limb asymmetry [Unknown]
  - Irritability [Unknown]
  - Transient tachypnoea of the newborn [Unknown]
  - Foetal exposure during pregnancy [Unknown]
  - Umbilical hernia [Unknown]
  - Eczema [Unknown]
  - Adenoidal hypertrophy [Unknown]
  - Ocular hyperaemia [Unknown]
  - Vomiting [Unknown]
  - Abdominal pain [Unknown]
  - Pain in extremity [Unknown]
  - Dermatitis atopic [Unknown]
  - Teething [Unknown]
  - Congenital anomaly [Unknown]
  - Neonatal hyponatraemia [Unknown]
  - Cystitis [Unknown]
  - Oral candidiasis [Unknown]
  - Rash [Unknown]
  - Viral infection [Unknown]
  - Contusion [Unknown]
  - Pruritus [Unknown]
  - Arthralgia [Unknown]
  - Left-to-right cardiac shunt [Unknown]
  - Pneumocystis jirovecii pneumonia [Unknown]
  - Cardiac murmur [Unknown]
  - Seasonal allergy [Unknown]
  - Gastrooesophageal reflux disease [Unknown]
  - Dysuria [Unknown]
  - Drooling [Unknown]
  - Ear pain [Unknown]
  - Rhinitis [Unknown]
  - Nasal congestion [Unknown]
  - Wheezing [Unknown]
  - Influenza [Unknown]
  - Middle ear effusion [Unknown]
  - Atrial septal defect [Unknown]
  - Neonatal respiratory distress syndrome [Unknown]
  - Asthma [Unknown]
  - Cardiomegaly [Unknown]
  - Pharyngitis [Unknown]
  - Cough [Unknown]
  - Pyrexia [Unknown]
  - Rhinorrhoea [Unknown]
  - Cerumen impaction [Unknown]
  - Gastritis [Unknown]
  - Skin laceration [Unknown]
  - Joint swelling [Unknown]
  - Jaundice neonatal [Unknown]
  - Adenoiditis [Unknown]
  - Otitis media [Unknown]
  - Upper respiratory tract infection [Unknown]
  - Dermatitis [Unknown]
  - Tonsillitis [Unknown]
  - Acute sinusitis [Unknown]
  - Dental caries [Unknown]
  - Viral pharyngitis [Unknown]
